FAERS Safety Report 10936284 (Version 1)
Quarter: 2015Q1

REPORT INFORMATION
  Report Type: Spontaneous
  Country: US (occurrence: None)
  Receive Date: 20150319
  Receipt Date: 20150319
  Transmission Date: 20150721
  Serious: Yes (Other)
  Sender: FDA-Public Use
  Company Number: None

PATIENT
  Age: 66 Year
  Sex: Female
  Weight: 58.97 kg

DRUGS (1)
  1. OPTIMARK [Suspect]
     Active Substance: GADOVERSETAMIDE
     Indication: NUCLEAR MAGNETIC RESONANCE IMAGING BRAIN
     Dosage: 1:00 PM - 1:30 PM
     Dates: start: 20150206

REACTIONS (16)
  - Pyrexia [None]
  - Dizziness [None]
  - Muscle spasms [None]
  - Rash [None]
  - Fatigue [None]
  - Erythema [None]
  - Skin exfoliation [None]
  - Headache [None]
  - Oedema peripheral [None]
  - Hyperhidrosis [None]
  - Skin tightness [None]
  - Parkinson^s disease [None]
  - Pruritus [None]
  - Weight increased [None]
  - Movement disorder [None]
  - Cough [None]

NARRATIVE: CASE EVENT DATE: 20150206
